FAERS Safety Report 18998727 (Version 6)
Quarter: 2023Q2

REPORT INFORMATION
  Report Type: Other
  Country: CA (occurrence: CA)
  Receive Date: 20210312
  Receipt Date: 20230529
  Transmission Date: 20230722
  Serious: Yes (Hospitalization, Other)
  Sender: FDA-Public Use
  Company Number: CA-CELLTRION INC.-2021CA002937

PATIENT

DRUGS (15)
  1. RITUXIMAB [Suspect]
     Active Substance: RITUXIMAB
     Indication: Rheumatoid arthritis
     Dosage: 1000 MILLIGRAM, 1 EVERY 2 WEEKS
     Route: 042
  2. ACETAMINOPHEN [Concomitant]
     Active Substance: ACETAMINOPHEN
     Indication: Premedication
     Dosage: 650 MILLIGRAM
     Route: 048
  3. ACETAMINOPHEN [Concomitant]
     Active Substance: ACETAMINOPHEN
     Indication: Arthralgia
  4. CALCIUM CARBONATE [Concomitant]
     Active Substance: CALCIUM CARBONATE
  5. DIPHENHYDRAMINE HYDROCHLORIDE [Concomitant]
     Active Substance: DIPHENHYDRAMINE HYDROCHLORIDE
     Indication: Premedication
     Dosage: 50 MILLIGRAM
     Route: 048
  6. FOLIC ACID [Concomitant]
     Active Substance: FOLIC ACID
  7. METHYLPREDNISOLONE [Concomitant]
     Active Substance: METHYLPREDNISOLONE
     Indication: Premedication
     Dosage: 100 MILLIGRAM
     Route: 042
  8. MOMETASONE [Concomitant]
     Active Substance: MOMETASONE
     Dosage: UNK
     Route: 045
  9. MOMETASONE [Concomitant]
     Active Substance: MOMETASONE
     Dosage: UNK
     Route: 065
  10. PANTOPRAZOLE [Concomitant]
     Active Substance: PANTOPRAZOLE
  11. PREDNISONE [Concomitant]
     Active Substance: PREDNISONE
  12. ROSUVASTATIN [Concomitant]
     Active Substance: ROSUVASTATIN
     Dosage: UNK
     Route: 058
  13. ALBUTEROL [Concomitant]
     Active Substance: ALBUTEROL
  14. SEVELAMER [Concomitant]
     Active Substance: SEVELAMER
  15. SULFASALAZINE [Concomitant]
     Active Substance: SULFASALAZINE
     Dosage: UNK

REACTIONS (19)
  - Anti-neutrophil cytoplasmic antibody positive vasculitis [Not Recovered/Not Resolved]
  - Blood pressure systolic abnormal [Not Recovered/Not Resolved]
  - Blood pressure diastolic decreased [Not Recovered/Not Resolved]
  - Blood pressure diastolic abnormal [Not Recovered/Not Resolved]
  - Blood pressure systolic increased [Not Recovered/Not Resolved]
  - Craniocerebral injury [Not Recovered/Not Resolved]
  - Dyslipidaemia [Not Recovered/Not Resolved]
  - End stage renal disease [Not Recovered/Not Resolved]
  - General physical health deterioration [Not Recovered/Not Resolved]
  - Granulomatosis with polyangiitis [Not Recovered/Not Resolved]
  - Oxygen saturation decreased [Not Recovered/Not Resolved]
  - Pulmonary haemorrhage [Not Recovered/Not Resolved]
  - Rheumatoid arthritis [Not Recovered/Not Resolved]
  - Type 2 diabetes mellitus [Not Recovered/Not Resolved]
  - Blood pressure fluctuation [Not Recovered/Not Resolved]
  - Blood pressure increased [Not Recovered/Not Resolved]
  - Lung disorder [Not Recovered/Not Resolved]
  - Dyspnoea [Not Recovered/Not Resolved]
  - Hepatitis B [Not Recovered/Not Resolved]
